FAERS Safety Report 19290181 (Version 1)
Quarter: 2021Q2

REPORT INFORMATION
  Report Type: Report from Study
  Country: US (occurrence: US)
  Receive Date: 20210522
  Receipt Date: 20210522
  Transmission Date: 20210717
  Serious: Yes (Death, Other)
  Sender: FDA-Public Use
  Company Number: US-TAKEDA-US202029345

PATIENT
  Age: 78 Year
  Sex: Female

DRUGS (2)
  1. GAMMAGARD S/D [Suspect]
     Active Substance: HUMAN IMMUNOGLOBULIN G
     Indication: IMMUNODEFICIENCY COMMON VARIABLE
     Dosage: 30 GRAM, EVERY 3 WK
     Route: 065
  2. GAMMAGARD S/D [Suspect]
     Active Substance: HUMAN IMMUNOGLOBULIN G
     Indication: IMMUNODEFICIENCY COMMON VARIABLE
     Dosage: 30 GRAM, EVERY 3 WK
     Route: 065

REACTIONS (11)
  - Incorrect drug administration rate [Unknown]
  - Autoinflammatory disease [Unknown]
  - Dyspnoea [Recovered/Resolved]
  - Nasal injury [Unknown]
  - Nausea [Recovering/Resolving]
  - Head injury [Unknown]
  - Fall [Unknown]
  - COVID-19 immunisation [Unknown]
  - Death [Fatal]
  - Urinary tract infection [Recovering/Resolving]
  - Wheelchair user [Unknown]

NARRATIVE: CASE EVENT DATE: 20201223
